FAERS Safety Report 18111996 (Version 4)
Quarter: 2020Q4

REPORT INFORMATION
  Report Type: Report from Study
  Country: CO (occurrence: CO)
  Receive Date: 20200805
  Receipt Date: 20201104
  Transmission Date: 20210113
  Serious: Yes (Hospitalization, Other)
  Sender: FDA-Public Use
  Company Number: CO-BRISTOL-MYERS SQUIBB COMPANY-BMS-2019-106751

PATIENT
  Age: 71 Year
  Sex: Female

DRUGS (2)
  1. NIVOLUMAB [Suspect]
     Active Substance: NIVOLUMAB
     Dosage: 240 MILLIGRAM, QMO
     Route: 042
     Dates: start: 20200507
  2. NIVOLUMAB [Suspect]
     Active Substance: NIVOLUMAB
     Indication: LUNG NEOPLASM MALIGNANT
     Dosage: 240 MILLIGRAM, Q2WK
     Route: 042
     Dates: start: 20191031

REACTIONS (17)
  - Hyperthyroidism [Recovered/Resolved]
  - Headache [Recovering/Resolving]
  - Back pain [Recovering/Resolving]
  - Weight decreased [Unknown]
  - Epistaxis [Recovered/Resolved]
  - Off label use [Unknown]
  - Asthenia [Recovering/Resolving]
  - Decreased appetite [Recovered/Resolved]
  - Blood thyroid stimulating hormone abnormal [Recovered/Resolved]
  - Pyrexia [Recovering/Resolving]
  - Blood creatinine increased [Recovered/Resolved]
  - Malignant neoplasm progression [Unknown]
  - Abdominal pain upper [Recovering/Resolving]
  - Ageusia [Unknown]
  - Nausea [Recovered/Resolved]
  - Vomiting [Unknown]
  - Somnolence [Unknown]

NARRATIVE: CASE EVENT DATE: 20191106
